FAERS Safety Report 7653437-1 (Version None)
Quarter: 2011Q3

REPORT INFORMATION
  Report Type: 
  Country: None (occurrence: None)
  Receive Date: 20110803
  Receipt Date: 20110801
  Transmission Date: 20111222
  Serious: No
  Sender: FDA-Public Use
  Company Number: US-PFIZER INC-2011175732

PATIENT
  Sex: Male

DRUGS (5)
  1. VERAPAMIL [Concomitant]
     Indication: HYPERTENSION
     Dosage: 240 MG, 1X/DAY
  2. LIPITOR [Suspect]
     Indication: BLOOD CHOLESTEROL INCREASED
     Dosage: 20 MG, 1X/DAY
     Route: 048
     Dates: start: 20110405, end: 20110101
  3. BYSTOLIC [Concomitant]
     Indication: HYPERTENSION
     Dosage: 5 MG, 1X/DAY
  4. TYLENOL W/ CODEINE NO. 3 [Concomitant]
     Dosage: 30 MG, UNK
  5. LOSARTAN POTASSIUM AND HYDROCHLOROTHIAZIDE [Concomitant]
     Indication: HYPERTENSION
     Dosage: 100/25 MG, 1X/DAY

REACTIONS (1)
  - ARTHRALGIA [None]
